FAERS Safety Report 5463141-6 (Version None)
Quarter: 2007Q3

REPORT INFORMATION
  Report Type: 
  Country: None (occurrence: None)
  Receive Date: 20070920
  Receipt Date: 20070913
  Transmission Date: 20080115
  Serious: Yes (Other)
  Sender: FDA-Public Use
  Company Number: GB-ROCHE-517861

PATIENT
  Age: 38 Year
  Sex: Female
  Weight: 84.4 kg

DRUGS (4)
  1. XENICAL [Suspect]
     Indication: OBESITY
     Route: 048
     Dates: start: 20070314, end: 20070801
  2. AMLODIPINE [Concomitant]
     Route: 048
  3. 1 CONCOMITANT DRUG [Concomitant]
     Dosage: DRUG NAME REPORTED AS LORSARTEN
     Route: 048
  4. DICLOFENAC [Concomitant]
     Indication: ARTHRITIS
     Route: 048

REACTIONS (1)
  - HYPERTENSION [None]
